FAERS Safety Report 24282067 (Version 1)
Quarter: 2024Q3

REPORT INFORMATION
  Report Type: Spontaneous
  Country: DE (occurrence: DE)
  Receive Date: 20240904
  Receipt Date: 20240904
  Transmission Date: 20241016
  Serious: Yes (Other)
  Sender: SK LIFE SCIENCE
  Company Number: DE4445

PATIENT

DRUGS (2)
  1. XCOPRI [Suspect]
     Active Substance: CENOBAMATE
     Indication: Product used for unknown indication
     Dosage: UNK
     Route: 048
     Dates: start: 202308
  2. XCOPRI [Suspect]
     Active Substance: CENOBAMATE
     Dosage: 225 MILLIGRAM
     Route: 048

REACTIONS (2)
  - Off label use [Unknown]
  - Thrombocytopenia [Unknown]
